FAERS Safety Report 9280510 (Version 1)
Quarter: 2013Q2

REPORT INFORMATION
  Report Type: Spontaneous
  Country: US (occurrence: US)
  Receive Date: 20130509
  Receipt Date: 20130509
  Transmission Date: 20140414
  Serious: Yes (Hospitalization)
  Sender: FDA-Public Use
  Company Number: US-BAYER-2013-053275

PATIENT
  Age: 52 Year
  Sex: Female
  Weight: 73.02 kg

DRUGS (6)
  1. BAYER GENUINE ASPIRIN ORIGINAL STRENGTH [Suspect]
     Indication: CHEST PAIN
     Dosage: 1 DF, PRN
     Route: 048
     Dates: start: 1977
  2. BAYER GENUINE ASPIRIN ORIGINAL STRENGTH [Suspect]
     Indication: BACK PAIN
     Dosage: 2 DF, UNK
     Route: 048
     Dates: start: 20130408
  3. BAYER GENUINE ASPIRIN ORIGINAL STRENGTH [Suspect]
     Indication: MYOCARDIAL INFARCTION
  4. VITAMIN D [Concomitant]
  5. FISH OIL [Concomitant]
  6. CALCIUM [Concomitant]

REACTIONS (6)
  - Off label use [None]
  - Coronary artery dissection [Recovered/Resolved]
  - Pericarditis [None]
  - Pyrexia [None]
  - Ventricular fibrillation [Recovered/Resolved]
  - Asthenia [Not Recovered/Not Resolved]
